FAERS Safety Report 19949881 (Version 3)
Quarter: 2021Q4

REPORT INFORMATION
  Report Type: Spontaneous
  Country: GB (occurrence: GB)
  Receive Date: 20211013
  Receipt Date: 20211204
  Transmission Date: 20220303
  Serious: Yes (Death)
  Sender: FDA-Public Use
  Company Number: None

PATIENT
  Age: 70 Year
  Sex: Male

DRUGS (10)
  1. AMIODARONE [Suspect]
     Active Substance: AMIODARONE
     Indication: Ill-defined disorder
     Dosage: 200 MG, TID (FOR ONE WEEK) (INITIAL LOADING DOSE OF 200MG TDS)
     Route: 048
     Dates: start: 20200207
  2. AMIODARONE [Suspect]
     Active Substance: AMIODARONE
     Dosage: 200 MG, BID (FOR ONE WEEK)
     Route: 048
     Dates: start: 202002
  3. AMIODARONE [Suspect]
     Active Substance: AMIODARONE
     Dosage: 200 MG, QD (MAINTENANCE)
     Route: 048
     Dates: start: 202002
  4. EPLERENONE [Suspect]
     Active Substance: EPLERENONE
     Indication: Ill-defined disorder
     Dosage: 25 MG, QD
     Route: 048
     Dates: start: 20200208
  5. EPLERENONE [Suspect]
     Active Substance: EPLERENONE
     Indication: Ejection fraction decreased
  6. APIXABAN [Concomitant]
     Active Substance: APIXABAN
     Indication: Ill-defined disorder
     Dosage: UNK
     Route: 065
  7. ATORVASTATIN [Concomitant]
     Active Substance: ATORVASTATIN
     Indication: Ill-defined disorder
     Dosage: UNK
     Route: 065
  8. CALCIPOTRIENE [Concomitant]
     Active Substance: CALCIPOTRIENE
     Indication: Ill-defined disorder
     Dosage: UNK
     Route: 065
  9. RAMIPRIL [Concomitant]
     Active Substance: RAMIPRIL
     Indication: Ill-defined disorder
     Dosage: UNK
     Route: 065
  10. BISOPROLOL [Concomitant]
     Active Substance: BISOPROLOL
     Indication: Product used for unknown indication
     Route: 065

REACTIONS (4)
  - Tachyarrhythmia [Fatal]
  - Myocardial infarction [Fatal]
  - Palpitations [Not Recovered/Not Resolved]
  - Circulatory collapse [Not Recovered/Not Resolved]

NARRATIVE: CASE EVENT DATE: 20200210
